FAERS Safety Report 11458060 (Version 1)
Quarter: 2015Q3

REPORT INFORMATION
  Report Type: Spontaneous
  Country: US (occurrence: US)
  Receive Date: 20150904
  Receipt Date: 20150904
  Transmission Date: 20151125
  Serious: Yes (Other)
  Sender: FDA-Public Use
  Company Number: US-SA-2015SA132127

PATIENT
  Age: 64 Year
  Sex: Male

DRUGS (1)
  1. SEVELAMER SALT NOT SPECIFIED [Suspect]
     Active Substance: SEVELAMER
     Route: 065

REACTIONS (3)
  - Necrosis [Unknown]
  - Pneumatosis [Unknown]
  - Abdominal pain [Unknown]
